FAERS Safety Report 9636563 (Version 1)
Quarter: 2013Q4

REPORT INFORMATION
  Report Type: Spontaneous
  Country: US (occurrence: US)
  Receive Date: 20131021
  Receipt Date: 20131021
  Transmission Date: 20140711
  Serious: Yes (Other)
  Sender: FDA-Public Use
  Company Number: PHHY2013US113710

PATIENT
  Age: 53 Year
  Sex: Male

DRUGS (2)
  1. CEFEPIME [Suspect]
     Indication: INFECTION
     Route: 042
  2. VANCOMYCIN [Suspect]
     Indication: INFECTION
     Route: 042

REACTIONS (5)
  - Drug reaction with eosinophilia and systemic symptoms [Unknown]
  - Pyrexia [Unknown]
  - Erythema [Unknown]
  - Rash macular [Unknown]
  - Pruritus [Unknown]
